FAERS Safety Report 7064643-1 (Version None)
Quarter: 2010Q4

REPORT INFORMATION
  Report Type: 
  Country: None (occurrence: None)
  Receive Date: 20101027
  Receipt Date: 20101015
  Transmission Date: 20110411
  Serious: Yes (Hospitalization)
  Sender: FDA-Public Use
  Company Number: CA-WYE-H17973210

PATIENT
  Sex: Male

DRUGS (1)
  1. TEMSIROLIMUS [Suspect]
     Indication: RENAL CELL CARCINOMA
     Route: 042
     Dates: start: 20100816, end: 20100927

REACTIONS (4)
  - ABDOMINAL ADHESIONS [None]
  - DIALYSIS [None]
  - INTESTINAL OBSTRUCTION [None]
  - RENAL FAILURE [None]
